FAERS Safety Report 25025370 (Version 3)
Quarter: 2025Q3

REPORT INFORMATION
  Report Type: Spontaneous
  Country: US (occurrence: US)
  Receive Date: 20250228
  Receipt Date: 20250803
  Transmission Date: 20251020
  Serious: Yes (Other)
  Sender: ALEXION PHARMACEUTICALS
  Company Number: US-AstraZeneca-CH-00805291A

PATIENT
  Age: 72 Year
  Sex: Male

DRUGS (2)
  1. ULTOMIRIS [Suspect]
     Active Substance: RAVULIZUMAB-CWVZ
     Indication: Myasthenia gravis
     Dosage: UNK UNK, Q8W
     Dates: start: 202208
  2. PREDNISONE [Concomitant]
     Active Substance: PREDNISONE
     Route: 065

REACTIONS (5)
  - Choking [Unknown]
  - Therapeutic response shortened [Recovered/Resolved]
  - Product supply issue [Unknown]
  - Cough [Unknown]
  - Dysarthria [Unknown]

NARRATIVE: CASE EVENT DATE: 20240801
